FAERS Safety Report 24581474 (Version 5)
Quarter: 2025Q3

REPORT INFORMATION
  Report Type: Report from Study
  Country: US (occurrence: US)
  Receive Date: 20241105
  Receipt Date: 20250925
  Transmission Date: 20251020
  Serious: Yes (Other)
  Sender: TAKEDA
  Company Number: US-TAKEDA-2024TUS110580

PATIENT
  Age: 80 Year
  Sex: Female
  Weight: 69 kg

DRUGS (2)
  1. GLASSIA [Suspect]
     Active Substance: .ALPHA.1-PROTEINASE INHIBITOR HUMAN
     Indication: Alpha-1 antitrypsin deficiency
  2. GLASSIA [Suspect]
     Active Substance: .ALPHA.1-PROTEINASE INHIBITOR HUMAN

REACTIONS (7)
  - Atrial fibrillation [Unknown]
  - Gait disturbance [Unknown]
  - Cystitis [Recovering/Resolving]
  - Dizziness postural [Unknown]
  - Oxygen saturation decreased [Unknown]
  - Dyspnoea [Unknown]
  - Back injury [Unknown]
